FAERS Safety Report 18765722 (Version 4)
Quarter: 2021Q1

REPORT INFORMATION
  Report Type: Spontaneous
  Country: US (occurrence: US)
  Receive Date: 20210120
  Receipt Date: 20210224
  Transmission Date: 20210419
  Serious: Yes (Hospitalization, Other)
  Sender: FDA-Public Use
  Company Number: US-GILEAD-2021-0513715

PATIENT
  Age: 58 Year
  Sex: Male
  Weight: 111.8 kg

DRUGS (1)
  1. YESCARTA [Suspect]
     Active Substance: AXICABTAGENE CILOLEUCEL
     Indication: DIFFUSE LARGE B-CELL LYMPHOMA
     Dosage: 68 ML, SINGLE
     Route: 042
     Dates: start: 20210111, end: 20210111

REACTIONS (9)
  - Coordination abnormal [Recovered/Resolved]
  - Cytokine release syndrome [Unknown]
  - Neurotoxicity [Recovered/Resolved]
  - Neurotoxicity [Recovered/Resolved]
  - Tremor [Recovered/Resolved]
  - Insomnia [Recovered/Resolved]
  - Delirium [Recovered/Resolved]
  - Encephalopathy [Recovered/Resolved]
  - Speech disorder [Recovered/Resolved]

NARRATIVE: CASE EVENT DATE: 20210112
